FAERS Safety Report 9753235 (Version 1)
Quarter: 2013Q4

REPORT INFORMATION
  Report Type: Spontaneous
  Country: US (occurrence: US)
  Receive Date: 20131213
  Receipt Date: 20131213
  Transmission Date: 20140711
  Serious: No
  Sender: FDA-Public Use
  Company Number: US-GILEAD-2010-0027634

PATIENT
  Sex: Male
  Weight: 56.25 kg

DRUGS (13)
  1. LETAIRIS [Suspect]
     Indication: PULMONARY ARTERIAL HYPERTENSION
     Route: 048
     Dates: start: 20091102
  2. MUCINEX [Concomitant]
  3. ADVIL [Concomitant]
  4. TUMS [Concomitant]
  5. PEPCID [Concomitant]
  6. CENTRUM [Concomitant]
  7. ALBUTEROL INHALER [Concomitant]
  8. VFEND [Concomitant]
  9. NASACORT [Concomitant]
  10. ALLEGRA [Concomitant]
  11. ADVAIR [Concomitant]
  12. VERAMYST [Concomitant]
  13. LUNESTA [Concomitant]

REACTIONS (1)
  - Tongue disorder [Unknown]
